FAERS Safety Report 4539228-9 (Version None)
Quarter: 2004Q4

REPORT INFORMATION
  Report Type: 
  Country: None (occurrence: None)
  Receive Date: 20041228
  Receipt Date: 20041215
  Transmission Date: 20050328
  Serious: Yes (Other)
  Sender: FDA-Public Use
  Company Number: 200414707FR

PATIENT
  Sex: Male

DRUGS (4)
  1. TAXOTERE [Suspect]
     Indication: PROSTATE CANCER
     Route: 041
     Dates: start: 20041001
  2. DECAPEPTYL                              /SCH/ [Concomitant]
  3. SKENAN [Concomitant]
  4. ZOPHREN [Concomitant]

REACTIONS (3)
  - BLOOD ALKALINE PHOSPHATASE INCREASED [None]
  - HAEMOLYTIC ANAEMIA [None]
  - NEUTROPENIA [None]
